FAERS Safety Report 10545119 (Version 5)
Quarter: 2014Q4

REPORT INFORMATION
  Report Type: Spontaneous
  Country: JP (occurrence: JP)
  Receive Date: 20141027
  Receipt Date: 20141201
  Transmission Date: 20150529
  Serious: Yes (Hospitalization)
  Sender: FDA-Public Use
  Company Number: JP-SA-2014SA145752

PATIENT
  Age: 50 Year
  Sex: Female
  Weight: 50 kg

DRUGS (5)
  1. TAXOTERE [Suspect]
     Active Substance: DOCETAXEL
     Indication: OVARIAN CANCER
     Route: 042
     Dates: start: 20140220, end: 20140611
  2. PACLITAXEL. [Concomitant]
     Active Substance: PACLITAXEL
     Route: 065
     Dates: start: 20130904, end: 20140214
  3. DEXART [Concomitant]
     Active Substance: DEXAMETHASONE SODIUM PHOSPHATE
     Dosage: FREQUENCY: EVERY FOUR WEEKS
     Route: 042
     Dates: start: 20140220, end: 20140611
  4. CARBOPLATIN. [Concomitant]
     Active Substance: CARBOPLATIN
     Indication: OVARIAN CANCER
     Dosage: ONCE EVERY 4 WEEKS
     Route: 042
     Dates: start: 20140220, end: 20140611
  5. AZASETRON HYDROCHLORIDE [Concomitant]
     Active Substance: AZASETRON HYDROCHLORIDE
     Dosage: FREQUENCY: EVERY FOUR WEEKS
     Route: 042
     Dates: start: 20140220, end: 20140611

REACTIONS (5)
  - Muscular weakness [Recovering/Resolving]
  - Rash [Recovering/Resolving]
  - Dermatomyositis [Recovering/Resolving]
  - Asthenia [Recovering/Resolving]
  - Erythema [Recovering/Resolving]

NARRATIVE: CASE EVENT DATE: 20140331
